FAERS Safety Report 5222729-8 (Version None)
Quarter: 2007Q1

REPORT INFORMATION
  Report Type: 
  Country: None (occurrence: None)
  Receive Date: 20070129
  Receipt Date: 20060713
  Transmission Date: 20070707
  Serious: No
  Sender: FDA-Public Use
  Company Number: US-GLAXOSMITHKLINE-A0612887A

PATIENT
  Sex: Male

DRUGS (2)
  1. EPIVIR-HBV [Suspect]
     Indication: HEPATITIS B
  2. EPIVIR [Suspect]
     Indication: HEPATITIS B

REACTIONS (2)
  - OFF LABEL USE [None]
  - THERAPEUTIC RESPONSE DECREASED [None]
